FAERS Safety Report 14473056 (Version 1)
Quarter: 2018Q1

REPORT INFORMATION
  Report Type: Report from Study
  Country: US (occurrence: US)
  Receive Date: 20180201
  Receipt Date: 20180201
  Transmission Date: 20180509
  Serious: No
  Sender: FDA-Public Use
  Company Number: US-AMGEN-USASL2018012730

PATIENT
  Age: 49 Year
  Sex: Female

DRUGS (2)
  1. STELARA [Concomitant]
     Active Substance: USTEKINUMAB
     Dosage: UNK
     Dates: start: 201801
  2. ENBREL [Suspect]
     Active Substance: ETANERCEPT
     Indication: RHEUMATOID ARTHRITIS
     Dosage: UNK UNK, QWK
     Route: 065
     Dates: start: 2017

REACTIONS (3)
  - Injection site warmth [Unknown]
  - Injection site pruritus [Unknown]
  - Injection site erythema [Unknown]
